FAERS Safety Report 9448730 (Version 5)
Quarter: 2013Q4

REPORT INFORMATION
  Report Type: Spontaneous
  Country: US (occurrence: US)
  Receive Date: 20130808
  Receipt Date: 20131230
  Transmission Date: 20140711
  Serious: Yes (Other)
  Sender: FDA-Public Use
  Company Number: US-JNJFOC-20130616321

PATIENT
  Sex: Female

DRUGS (24)
  1. TOPAMAX [Suspect]
     Indication: CONVULSION
     Route: 048
     Dates: start: 2009, end: 2009
  2. TOPAMAX [Suspect]
     Indication: CONVULSION
     Route: 048
  3. TOPAMAX [Suspect]
     Indication: MIGRAINE
     Route: 048
     Dates: start: 2009, end: 2009
  4. TOPAMAX [Suspect]
     Indication: MIGRAINE
     Route: 048
  5. HALDOL [Suspect]
     Indication: BIPOLAR DISORDER
     Route: 048
  6. LITHIUM [Suspect]
     Indication: BIPOLAR DISORDER
     Dosage: 450 MG IN MORNING AND 720 MG AT NIGHT.
     Route: 048
     Dates: end: 200904
  7. SEROQUEL [Suspect]
     Indication: BIPOLAR DISORDER
     Route: 048
  8. LAMICTAL [Suspect]
     Indication: COMPLEX PARTIAL SEIZURES
     Route: 048
  9. IMITREX [Suspect]
     Indication: MIGRAINE
     Route: 065
  10. MIDRIN [Suspect]
     Indication: HEADACHE
     Route: 048
  11. ALDOMET [Suspect]
     Indication: HYPERTENSION
     Route: 048
  12. ALDOMET [Suspect]
     Indication: HYPERTENSION
     Route: 048
     Dates: end: 200904
  13. VISTARIL [Suspect]
     Indication: BIPOLAR DISORDER
     Route: 048
  14. VISTARIL [Suspect]
     Indication: ANXIETY
     Route: 048
  15. AMBIEN [Suspect]
     Indication: INSOMNIA
     Route: 065
  16. FLUOXETINE [Suspect]
     Indication: ANXIETY
     Route: 065
  17. TRILEPTAL [Suspect]
     Indication: CONVULSION
     Route: 065
  18. ZYPREXA [Suspect]
     Indication: BIPOLAR DISORDER
     Route: 065
  19. HYDROCODONE-ACETAMINOPHEN [Suspect]
     Indication: DENTAL DISCOMFORT
     Route: 065
  20. LUNESTA [Suspect]
     Indication: INSOMNIA
     Route: 048
  21. CEPHALEXIN [Suspect]
     Indication: INFECTION
     Route: 065
  22. AMOXICILLIN [Suspect]
     Indication: INFECTION
     Route: 065
  23. MULTIVITAMINS [Concomitant]
     Route: 065
  24. FOLIC ACID [Concomitant]
     Indication: PREGNANCY
     Route: 065

REACTIONS (4)
  - Exposure during pregnancy [Recovered/Resolved]
  - Premature baby [Recovered/Resolved]
  - Oligohydramnios [Unknown]
  - Proteinuria [Unknown]
